FAERS Safety Report 24748770 (Version 3)
Quarter: 2025Q1

REPORT INFORMATION
  Report Type: Spontaneous
  Country: JP (occurrence: JP)
  Receive Date: 20241218
  Receipt Date: 20250113
  Transmission Date: 20250408
  Serious: Yes (Other)
  Sender: PFIZER
  Company Number: JP-PFIZER INC-PV202400162829

PATIENT
  Age: 75 Year
  Sex: Female
  Weight: 46 kg

DRUGS (4)
  1. AXITINIB [Suspect]
     Active Substance: AXITINIB
     Indication: Renal cancer
     Dosage: 10 MG, DAILY
     Dates: start: 202211
  2. AXITINIB [Suspect]
     Active Substance: AXITINIB
     Dosage: 5 MG, DAILY
     Dates: end: 20230725
  3. PEMBROLIZUMAB [Suspect]
     Active Substance: PEMBROLIZUMAB
     Indication: Renal cancer
     Dosage: 200 MG, EVERY 3 WEEKS
     Dates: start: 202211
  4. PEMBROLIZUMAB [Suspect]
     Active Substance: PEMBROLIZUMAB
     Dates: start: 202304

REACTIONS (1)
  - Thrombocytopenia [Recovered/Resolved]
